FAERS Safety Report 19372632 (Version 1)
Quarter: 2021Q2

REPORT INFORMATION
  Report Type: Spontaneous
  Country: US (occurrence: US)
  Receive Date: 20210604
  Receipt Date: 20210604
  Transmission Date: 20210717
  Serious: No
  Sender: FDA-Public Use
  Company Number: US-AMGEN-USASP2021081599

PATIENT
  Age: 78 Year
  Sex: Female

DRUGS (3)
  1. PANITUMUMAB [Suspect]
     Active Substance: PANITUMUMAB
     Indication: SQUAMOUS CELL CARCINOMA OF SKIN
     Dosage: UNK UNK, CYCLICAL (26 CYCLES)
     Route: 065
     Dates: start: 20190227
  2. PEMBROLIZUMAB. [Concomitant]
     Active Substance: PEMBROLIZUMAB
     Indication: METASTATIC SQUAMOUS CELL CARCINOMA
     Dosage: UNK UNK, CYCLICAL (27 CYCLES)
  3. PANITUMUMAB [Suspect]
     Active Substance: PANITUMUMAB
     Indication: OFF LABEL USE

REACTIONS (5)
  - Drug effective for unapproved indication [Unknown]
  - Off label use [Unknown]
  - Scab [Recovered/Resolved]
  - Alopecia [Recovering/Resolving]
  - Erythema [Recovered/Resolved]

NARRATIVE: CASE EVENT DATE: 2019
